FAERS Safety Report 24757284 (Version 2)
Quarter: 2024Q4

REPORT INFORMATION
  Report Type: Spontaneous
  Country: ES (occurrence: ES)
  Receive Date: 20241220
  Receipt Date: 20241223
  Transmission Date: 20250115
  Serious: Yes (Life-Threatening, Disabling)
  Sender: BIOVITRUM
  Company Number: None

PATIENT
  Age: 14 Year
  Sex: Female

DRUGS (1)
  1. KINERET [Suspect]
     Active Substance: ANAKINRA
     Indication: Juvenile idiopathic arthritis
     Dosage: 100 MG DAY?INJECTION IN PREFILLED SYRINGE 7 GRADUATED PREFILLED SYRINGES OF 0.67ML
     Dates: start: 20240501, end: 20241210

REACTIONS (2)
  - Lymphadenopathy [Recovering/Resolving]
  - Autoimmune lymphoproliferative syndrome [Recovering/Resolving]

NARRATIVE: CASE EVENT DATE: 20241025
